FAERS Safety Report 8241310-X (Version None)
Quarter: 2012Q1

REPORT INFORMATION
  Report Type: 
  Country: None (occurrence: None)
  Receive Date: 20120328
  Receipt Date: 20120322
  Transmission Date: 20120608
  Serious: Yes (Life-Threatening, Hospitalization)
  Sender: FDA-Public Use
  Company Number: DE-PFIZER INC-2012074231

PATIENT
  Age: 29 Year
  Sex: Male

DRUGS (1)
  1. LYRICA [Suspect]
     Indication: DEPENDENCE
     Dosage: 750 MG
     Route: 048
     Dates: start: 20110910

REACTIONS (6)
  - DISORIENTATION [None]
  - SOMNOLENCE [None]
  - SPEECH DISORDER [None]
  - POISONING [None]
  - APHASIA [None]
  - DYSARTHRIA [None]
